FAERS Safety Report 7395796-3 (Version None)
Quarter: 2011Q2

REPORT INFORMATION
  Report Type: 
  Country: None (occurrence: None)
  Receive Date: 20110405
  Receipt Date: 20110328
  Transmission Date: 20111010
  Serious: Yes (Hospitalization, Disabling, Other)
  Sender: FDA-Public Use
  Company Number: US-MERCK-1005USA02718

PATIENT
  Age: 60 Year
  Sex: Female
  Weight: 65 kg

DRUGS (9)
  1. FOSAMAX [Suspect]
     Indication: OSTEOPOROSIS PROPHYLAXIS
     Route: 048
     Dates: start: 20020814, end: 20060301
  2. FOSAMAX PLUS D [Suspect]
     Route: 048
     Dates: start: 20080809, end: 20080830
  3. PROVERA [Concomitant]
     Indication: HORMONE REPLACEMENT THERAPY
     Route: 048
     Dates: start: 19930101
  4. FOSAMAX PLUS D [Suspect]
     Route: 048
     Dates: start: 20080809, end: 20080830
  5. FOSAMAX PLUS D [Suspect]
     Indication: OSTEOPENIA
     Route: 048
     Dates: start: 20060303, end: 20080525
  6. PREMARIN [Concomitant]
     Indication: HORMONE REPLACEMENT THERAPY
     Route: 048
     Dates: start: 19930101
  7. ELAVIL [Concomitant]
     Indication: MIGRAINE
     Route: 048
     Dates: start: 19930101
  8. FOSAMAX [Suspect]
     Indication: OSTEOPENIA
     Route: 048
     Dates: start: 20020814, end: 20060301
  9. FOSAMAX PLUS D [Suspect]
     Indication: OSTEOPOROSIS PROPHYLAXIS
     Route: 048
     Dates: start: 20060303, end: 20080525

REACTIONS (59)
  - PAIN [None]
  - JOINT SPRAIN [None]
  - NECK PAIN [None]
  - IMPAIRED HEALING [None]
  - VITAMIN D DEFICIENCY [None]
  - CYST [None]
  - JOINT SWELLING [None]
  - MENISCUS LESION [None]
  - CHRONIC SINUSITIS [None]
  - FOOT FRACTURE [None]
  - STAPHYLOCOCCAL INFECTION [None]
  - PROTEINURIA [None]
  - LACTOSE INTOLERANCE [None]
  - CONSTIPATION [None]
  - IRON DEFICIENCY ANAEMIA [None]
  - BACK PAIN [None]
  - HYPOACUSIS [None]
  - WOUND DEHISCENCE [None]
  - GAIT DISTURBANCE [None]
  - INCISIONAL DRAINAGE [None]
  - IMPAIRED WORK ABILITY [None]
  - HYPERSENSITIVITY [None]
  - CATARACT [None]
  - FEMUR FRACTURE [None]
  - MUSCULOSKELETAL DISCOMFORT [None]
  - MITRAL VALVE PROLAPSE [None]
  - LOW TURNOVER OSTEOPATHY [None]
  - OEDEMA PERIPHERAL [None]
  - ARTHROPATHY [None]
  - DIZZINESS [None]
  - ANXIETY [None]
  - FALL [None]
  - BLOOD ALKALINE PHOSPHATASE INCREASED [None]
  - DIARRHOEA [None]
  - DRUG HYPERSENSITIVITY [None]
  - HAEMORRHOIDS [None]
  - VITREOUS FLOATERS [None]
  - RHINITIS ALLERGIC [None]
  - HYPERTENSION [None]
  - DEPRESSION [None]
  - PLEURAL EFFUSION [None]
  - CARDIAC MURMUR [None]
  - EPISTAXIS [None]
  - JOINT EFFUSION [None]
  - INTERVERTEBRAL DISC SPACE NARROWING [None]
  - FATIGUE [None]
  - PAIN IN EXTREMITY [None]
  - OSTEOARTHRITIS [None]
  - NAUSEA [None]
  - WEIGHT INCREASED [None]
  - ASTHENIA [None]
  - POLLAKIURIA [None]
  - STRESS [None]
  - LIMB MALFORMATION [None]
  - SYNOVIAL CYST [None]
  - ACIDOSIS [None]
  - PNEUMONITIS [None]
  - VOMITING [None]
  - STRESS FRACTURE [None]
